FAERS Safety Report 17007252 (Version 2)
Quarter: 2019Q4

REPORT INFORMATION
  Report Type: Report from Study
  Country: JP (occurrence: JP)
  Receive Date: 20191108
  Receipt Date: 20191129
  Transmission Date: 20200122
  Serious: Yes (Other)
  Sender: FDA-Public Use
  Company Number: JP-EMD SERONO-9126867

PATIENT
  Age: 33 Year
  Sex: Female

DRUGS (1)
  1. GONAL-F RFF [Suspect]
     Active Substance: FOLLITROPIN
     Indication: POLYCYSTIC OVARIES
     Dosage: FORM STRENGTH: 300 (UNSPECIFIED UNIT)?UNIT DOSE: 50 UNITS
     Route: 058
     Dates: start: 20191101, end: 20191103

REACTIONS (1)
  - Haemorrhage [Recovered/Resolved]

NARRATIVE: CASE EVENT DATE: 20191103
